FAERS Safety Report 7822236-X (Version None)
Quarter: 2011Q4

REPORT INFORMATION
  Report Type: 
  Country: None (occurrence: None)
  Receive Date: 20111018
  Receipt Date: 20111003
  Transmission Date: 20120403
  Serious: Yes (Hospitalization, Other)
  Sender: FDA-Public Use
  Company Number: US-WATSON-2011-16545

PATIENT
  Age: 28 Year
  Sex: Female

DRUGS (2)
  1. ALCOHOL [Suspect]
     Indication: PRODUCT USED FOR UNKNOWN INDICATION
     Dosage: 100 ML VODKA
     Route: 048
  2. DIPHENHYDRAMINE HCL [Suspect]
     Indication: PRODUCT USED FOR UNKNOWN INDICATION
     Dosage: 50 MG, SINGLE (29 CAPSULES OF AN OTC SLEEP AID)
     Route: 048

REACTIONS (5)
  - COMPARTMENT SYNDROME [None]
  - SUICIDE ATTEMPT [None]
  - RHABDOMYOLYSIS [None]
  - INTENTIONAL OVERDOSE [None]
  - TACHYCARDIA [None]
